FAERS Safety Report 5268618-4 (Version None)
Quarter: 2007Q1

REPORT INFORMATION
  Report Type: 
  Country: None (occurrence: None)
  Receive Date: 20070315
  Receipt Date: 20070315
  Transmission Date: 20070707
  Serious: No
  Sender: FDA-Public Use
  Company Number: None

PATIENT
  Age: 35 Year
  Sex: Female
  Weight: 56.6996 kg

DRUGS (3)
  1. EFFEXOR XR [Suspect]
     Indication: ANXIETY
     Dosage: 75MG  DAILY  PO
     Route: 048
     Dates: start: 20060801, end: 20070314
  2. EFFEXOR XR [Suspect]
     Indication: DEPRESSION
     Dosage: 75MG  DAILY  PO
     Route: 048
     Dates: start: 20060801, end: 20070314
  3. EFFEXOR XR [Suspect]
     Indication: INSOMNIA
     Dosage: 75MG  DAILY  PO
     Route: 048
     Dates: start: 20060801, end: 20070314

REACTIONS (7)
  - AFFECT LABILITY [None]
  - ANXIETY [None]
  - CONDITION AGGRAVATED [None]
  - CRYING [None]
  - DEPRESSION [None]
  - DISTURBANCE IN ATTENTION [None]
  - DRUG WITHDRAWAL SYNDROME [None]
